FAERS Safety Report 10389872 (Version 1)
Quarter: 2014Q1

REPORT INFORMATION
  Report Type: Spontaneous
  Country: US (occurrence: None)
  Receive Date: 20140306
  Receipt Date: 20140306
  Transmission Date: 20141002
  Serious: Yes (Other)
  Sender: FDA-Public Use
  Company Number: 163-21880-13012864

PATIENT
  Age: 65 Year
  Sex: Female
  Weight: 95.98 kg

DRUGS (17)
  1. REVLIMID (LENALIDOMIDE() (25 MILLIGRAM, CAPSULES) [Suspect]
     Indication: PLASMA CELL MYELOMA
     Dosage: 21 IN 28D
     Dates: start: 20090516
  2. AGGRENOX (ASASANTIN) [Concomitant]
  3. BONIVA (IBANDRONATE SODIUM) [Concomitant]
  4. ZOSTAVAX  (VARICELLA VIRUS VACCINE, LIVE) [Concomitant]
  5. ZOLPIDEM (ZOLPIDEM) [Concomitant]
  6. AMLODIPINE (AMLODIPINE) [Concomitant]
  7. DEXAMETHASONE (DEXAMETHASONE) [Concomitant]
  8. LIPITOR (ATORVASTATIN) [Concomitant]
  9. DIOVAN (VALSARTAN) [Concomitant]
  10. PROVENTIL (SALB UTALMOL SULFATE) [Concomitant]
  11. AZITHROMYCIN (AZITHROMYCIN) [Concomitant]
  12. SIMVASTATIN (SIMVASTATIN) [Concomitant]
  13. CIPROFLOXACIN (CIPROFLOXACIN) [Concomitant]
  14. PHENAZOPYRIDINE (PHENAZOPYRIDINE) [Concomitant]
  15. OSMOPREP [Concomitant]
  16. BRIMONIDINE ( BRIMONIDINE) [Concomitant]
  17. FLUKVIRIN (INFLUENZA VIRUS VACCINE POOLYVALENT) [Concomitant]

REACTIONS (1)
  - Thrombosis [None]
